FAERS Safety Report 18416432 (Version 1)
Quarter: 2020Q4

REPORT INFORMATION
  Report Type: Report from Study
  Country: NL (occurrence: NL)
  Receive Date: 20201022
  Receipt Date: 20201022
  Transmission Date: 20210114
  Serious: Yes (Other)
  Sender: FDA-Public Use
  Company Number: NL-AMGEN-NLDSL2020072090

PATIENT
  Age: 73 Year
  Sex: Female

DRUGS (6)
  1. XGEVA [Suspect]
     Active Substance: DENOSUMAB
     Indication: PROPHYLAXIS
     Dosage: 120 MILLIGRAM, Q4WK
     Route: 058
  2. CAPECITABINE. [Concomitant]
     Active Substance: CAPECITABINE
     Dosage: 500 MILLIGRAM, 2D3T
  3. LEVOTHYROXINE SODIUM. [Concomitant]
     Active Substance: LEVOTHYROXINE SODIUM
     Dosage: 100 MICROGRAM
  4. CALCIUM CARBONATE;COLECALCIFEROL [Concomitant]
     Active Substance: CALCIUM CARBONATE\CHOLECALCIFEROL
     Dosage: 1.25G/880IE (500MG CA), QD
  5. MEGESTROL [Concomitant]
     Active Substance: MEGESTROL
     Dosage: 160 MILLIGRAM, QD
  6. HYDROCHLOORTHIAZIDE [Concomitant]
     Active Substance: HYDROCHLOROTHIAZIDE
     Dosage: 12.5 MILLIGRAM, QD

REACTIONS (1)
  - Metastases to spine [Recovering/Resolving]

NARRATIVE: CASE EVENT DATE: 202004
